FAERS Safety Report 13494299 (Version 1)
Quarter: 2017Q2

REPORT INFORMATION
  Report Type: Report from Study
  Country: US (occurrence: US)
  Receive Date: 20170428
  Receipt Date: 20170428
  Transmission Date: 20170830
  Serious: Yes (Other)
  Sender: FDA-Public Use
  Company Number: US-ROCHE-1924506

PATIENT
  Age: 40 Year
  Sex: Female
  Weight: 74.91 kg

DRUGS (2)
  1. GAMMA KNIFE RADIATION [Concomitant]
     Indication: BREAST CANCER
     Dosage: UNKNOWN
     Route: 065
  2. XELODA [Suspect]
     Active Substance: CAPECITABINE
     Indication: BREAST CANCER
     Dosage: YES
     Route: 065

REACTIONS (7)
  - Photosensitivity reaction [Unknown]
  - Eye pain [Unknown]
  - Migraine [Unknown]
  - Pain [Unknown]
  - Ocular neoplasm [Unknown]
  - Hyperacusis [Unknown]
  - Lacrimation increased [Unknown]

NARRATIVE: CASE EVENT DATE: 20160202
